FAERS Safety Report 7314656-7 (Version None)
Quarter: 2011Q1

REPORT INFORMATION
  Report Type: 
  Country: None (occurrence: None)
  Receive Date: 20110225
  Receipt Date: 20101101
  Transmission Date: 20110831
  Serious: No
  Sender: FDA-Public Use
  Company Number: US-MYLANLABS-2010S1020003

PATIENT
  Age: 14 Year
  Sex: Male

DRUGS (2)
  1. AMNESTEEM [Suspect]
     Indication: ACNE CYSTIC
     Route: 048
     Dates: start: 20100825, end: 20100927
  2. AMNESTEEM [Suspect]
     Route: 048
     Dates: start: 20100927, end: 20101018

REACTIONS (2)
  - SWELLING FACE [None]
  - INFLAMMATION [None]
